FAERS Safety Report 20379451 (Version 1)
Quarter: 2022Q1

REPORT INFORMATION
  Report Type: Spontaneous
  Country: US (occurrence: US)
  Receive Date: 20220126
  Receipt Date: 20220126
  Transmission Date: 20220424
  Serious: Yes (Other)
  Sender: FDA-Public Use
  Company Number: US-PFIZER INC-202200092424

PATIENT
  Age: 9 Year
  Sex: Female

DRUGS (1)
  1. SIROLIMUS [Suspect]
     Active Substance: SIROLIMUS
     Dosage: UNK

REACTIONS (5)
  - Vascular malformation [Unknown]
  - Infection [Unknown]
  - Stomatitis [Unknown]
  - Headache [Unknown]
  - Viral infection [Unknown]
